FAERS Safety Report 24135433 (Version 1)
Quarter: 2024Q3

REPORT INFORMATION
  Report Type: Spontaneous
  Country: DE (occurrence: DE)
  Receive Date: 20240725
  Receipt Date: 20240725
  Transmission Date: 20241017
  Serious: Yes (Other)
  Sender: SAMSUNG BIOEPIS
  Company Number: DE-EMBRYOTOX-202308822

PATIENT
  Age: 1 Day
  Sex: Male
  Weight: 2.69 kg

DRUGS (3)
  1. ADALIMUMAB [Suspect]
     Active Substance: ADALIMUMAB\ISOPROPYL ALCOHOL
     Indication: Rheumatoid arthritis
     Dosage: 40 MG [1X/2WKS], 0-40.6 GESTATIONAL WEEK (1 TRIMESTER)
     Route: 064
     Dates: start: 20230128, end: 20231110
  2. PREDNISOLONE [Suspect]
     Active Substance: PREDNISOLONE
     Indication: Rheumatoid arthritis
     Dosage: 15 [MG/D ]/ PLANNED TIL 38.5, AT LEAST TAKEN TIL GW 37.6, STARTED WITH 15 MG, GRADUALLY REDUCED TO 5
     Route: 064
     Dates: start: 20230914, end: 20231026
  3. Fols?ure ABZ [Concomitant]
     Indication: Prophylaxis of neural tube defect
     Dosage: 5 [MG/D], 0-40.6 GESTATIONAL WEEK (1 TRIMESTER)
     Route: 064
     Dates: start: 20230128, end: 20231110

REACTIONS (2)
  - Small for dates baby [Recovering/Resolving]
  - Foetal exposure during pregnancy [Unknown]

NARRATIVE: CASE EVENT DATE: 20231101
